FAERS Safety Report 5899582-2 (Version None)
Quarter: 2008Q3

REPORT INFORMATION
  Report Type: 
  Country: None (occurrence: None)
  Receive Date: 20080926
  Receipt Date: 20080919
  Transmission Date: 20090109
  Serious: Yes (Other)
  Sender: FDA-Public Use
  Company Number: PHHY2008JP22089

PATIENT

DRUGS (3)
  1. COMTAN [Suspect]
     Indication: DRUG EFFECT DECREASED
     Route: 048
  2. AMARYL [Suspect]
  3. LEVODOPA [Suspect]

REACTIONS (1)
  - HYPOGLYCAEMIA [None]
